FAERS Safety Report 9135566 (Version 1)
Quarter: 2013Q1

REPORT INFORMATION
  Report Type: Spontaneous
  Country: CA (occurrence: CA)
  Receive Date: 20130304
  Receipt Date: 20130304
  Transmission Date: 20140127
  Serious: Yes (Hospitalization, Other)
  Sender: FDA-Public Use
  Company Number: CA-PFIZER INC-2013070790

PATIENT
  Age: 62 Year
  Sex: Female

DRUGS (4)
  1. CELEBREX [Suspect]
     Dosage: 200 MG, UNK
     Dates: start: 200308, end: 20041004
  2. ACETYLSALICYLIC ACID [Concomitant]
     Dosage: UNK
  3. NORVASC [Concomitant]
     Dosage: 10 MG, UNK
  4. AVALIDE [Concomitant]
     Dosage: 300/12.5 MG

REACTIONS (4)
  - Myocardial infarction [Recovering/Resolving]
  - Ventricular fibrillation [Recovering/Resolving]
  - Cardiac arrest [Recovering/Resolving]
  - Coronary artery disease [Recovering/Resolving]
